FAERS Safety Report 15345733 (Version 1)
Quarter: 2018Q3

REPORT INFORMATION
  Report Type: Report from Study
  Country: CH (occurrence: CH)
  Receive Date: 20180904
  Receipt Date: 20180904
  Transmission Date: 20181010
  Serious: Yes (Hospitalization)
  Sender: FDA-Public Use
  Company Number: CH-ROCHE-1958040

PATIENT
  Age: 70 Year
  Sex: Female
  Weight: 82 kg

DRUGS (20)
  1. ATEZOLIZUMAB. [Suspect]
     Active Substance: ATEZOLIZUMAB
     Indication: MALIGNANT URINARY TRACT NEOPLASM
     Dosage: MOST RECENT DOSE: 06/APR/2017
     Route: 042
     Dates: start: 20170315
  2. CO?CANDESARTAN [Concomitant]
     Route: 048
  3. SPIRICORT [Concomitant]
     Active Substance: PREDNISOLONE
     Indication: INTERVERTEBRAL DISC PROTRUSION
     Route: 048
     Dates: start: 20170320
  4. MAGNESIOCARD [Concomitant]
     Active Substance: MAGNESIUM ASPARTATE HYDROCHLORIDE
     Dosage: MAGNESIUM SUPPLEMENT
     Route: 048
     Dates: start: 20170625, end: 20170703
  5. PREDNISOLON [Suspect]
     Active Substance: PREDNISOLONE
     Indication: TRANSAMINASES INCREASED
     Route: 048
     Dates: start: 20170427, end: 20170506
  6. NOVALGIN (SWITZERLAND) [Concomitant]
     Active Substance: DIPYRONE
     Route: 048
     Dates: start: 20170228
  7. IMPORTAL [Concomitant]
     Active Substance: LACTITOL
     Route: 048
     Dates: start: 20141119
  8. XANAX [Concomitant]
     Active Substance: ALPRAZOLAM
     Indication: INTERVERTEBRAL DISC PROTRUSION
     Route: 048
     Dates: start: 20170320
  9. ONDANSETRON [Concomitant]
     Active Substance: ONDANSETRON
     Indication: PROPHYLAXIS
     Route: 060
     Dates: start: 20170629, end: 20170629
  10. ASPIRIN CARDIO [Concomitant]
     Active Substance: ASPIRIN
     Route: 048
  11. PRAVASTATIN. [Concomitant]
     Active Substance: PRAVASTATIN
     Indication: PROPHYLAXIS
     Route: 048
     Dates: start: 20170625, end: 20170703
  12. ONBREZ BREEZHALER [Concomitant]
     Active Substance: INDACATEROL
     Indication: PROPHYLAXIS
     Dosage: 1 INHALATION
     Route: 055
     Dates: start: 20170625, end: 20170703
  13. SIRDALUD [Concomitant]
     Active Substance: TIZANIDINE
     Route: 048
     Dates: start: 20170228
  14. PRAVALOTIN [Concomitant]
     Active Substance: PRAVASTATIN SODIUM
     Route: 048
  15. ANORO ELLIPTA [Concomitant]
     Active Substance: UMECLIDINIUM BROMIDE\VILANTEROL TRIFENATATE
     Indication: PROPHYLAXIS
     Dosage: 1 INHALATION
     Route: 055
     Dates: start: 20170625, end: 20170703
  16. PREDNISOLON [Suspect]
     Active Substance: PREDNISOLONE
     Route: 048
     Dates: start: 20170517
  17. PREDNISOLON [Suspect]
     Active Substance: PREDNISOLONE
     Route: 048
     Dates: start: 20170506, end: 20170516
  18. VANNAIR [Concomitant]
     Active Substance: BUDESONIDE\FORMOTEROL FUMARATE DIHYDRATE
     Dosage: INHALATION
     Route: 065
     Dates: start: 20150825
  19. VIMOVO [Concomitant]
     Active Substance: ESOMEPRAZOLE MAGNESIUM\NAPROXEN
     Route: 048
     Dates: start: 20170228
  20. CLEXANE [Concomitant]
     Active Substance: ENOXAPARIN SODIUM
     Indication: THROMBOSIS PROPHYLAXIS
     Route: 058
     Dates: start: 20170625, end: 20170703

REACTIONS (1)
  - Diverticulitis [Recovered/Resolved]

NARRATIVE: CASE EVENT DATE: 20170624
